FAERS Safety Report 9660625 (Version 1)
Quarter: 2013Q4

REPORT INFORMATION
  Report Type: Report from Study
  Country: US (occurrence: US)
  Receive Date: 20131031
  Receipt Date: 20131031
  Transmission Date: 20140711
  Serious: Yes (Hospitalization)
  Sender: FDA-Public Use
  Company Number: US-SA-2013SA107893

PATIENT
  Age: 16 Year
  Sex: Male
  Weight: 65.7 kg

DRUGS (6)
  1. CLOFARABINE [Suspect]
     Indication: PRECURSOR B-LYMPHOBLASTIC LYMPHOMA STAGE IV
     Dosage: CONSOLIDATION PART I
     Route: 065
  2. CLOFARABINE [Suspect]
     Indication: PRECURSOR B-LYMPHOBLASTIC LYMPHOMA STAGE IV
     Dosage: ON DAY 1-5; CONSOLIDATION PART II
     Route: 065
     Dates: start: 20120605, end: 20120609
  3. CYCLOPHOSPHAMIDE [Suspect]
     Indication: B PRECURSOR TYPE ACUTE LEUKAEMIA
     Route: 065
  4. CYCLOPHOSPHAMIDE [Suspect]
     Indication: B PRECURSOR TYPE ACUTE LEUKAEMIA
     Route: 065
     Dates: start: 20120605, end: 20120609
  5. ETOPOSIDE [Suspect]
     Indication: B PRECURSOR TYPE ACUTE LEUKAEMIA
     Route: 065
  6. ETOPOSIDE [Suspect]
     Indication: B PRECURSOR TYPE ACUTE LEUKAEMIA
     Route: 065
     Dates: start: 20120605, end: 20120609

REACTIONS (7)
  - Skin ulcer [Recovered/Resolved]
  - Hypoalbuminaemia [Recovered/Resolved]
  - Sepsis [Recovered/Resolved]
  - Enterocolitis infectious [Recovered/Resolved]
  - Urinary tract infection [Recovered/Resolved]
  - Oedema peripheral [Recovered/Resolved]
  - Febrile neutropenia [Recovered/Resolved]
